FAERS Safety Report 9804581 (Version 1)
Quarter: 2014Q1

REPORT INFORMATION
  Report Type: Spontaneous
  Country: CA (occurrence: CA)
  Receive Date: 20140108
  Receipt Date: 20140108
  Transmission Date: 20141002
  Serious: Yes (Death)
  Sender: FDA-Public Use
  Company Number: CA-B.I. PHARMACEUTICALS,INC./RIDGEFIELD-2014-BI-00730CN

PATIENT
  Sex: Male

DRUGS (4)
  1. PRADAXA [Suspect]
  2. ASPIRIN [Concomitant]
  3. ADVIL [Concomitant]
  4. WARFARIN [Concomitant]

REACTIONS (2)
  - Aortic stenosis [Fatal]
  - Gastrointestinal haemorrhage [Unknown]
